FAERS Safety Report 10536987 (Version 3)
Quarter: 2015Q2

REPORT INFORMATION
  Report Type: Report from Study
  Country: DE (occurrence: DE)
  Receive Date: 20141022
  Receipt Date: 20150403
  Transmission Date: 20150821
  Serious: Yes (Other)
  Sender: FDA-Public Use
  Company Number: DE-ABBVIE-14K-062-1298511-00

PATIENT
  Age: 50 Year
  Sex: Male
  Weight: 86 kg

DRUGS (2)
  1. METFORMINE [Concomitant]
     Active Substance: METFORMIN HYDROCHLORIDE
     Indication: PRODUCT USED FOR UNKNOWN INDICATION
     Dates: start: 2013
  2. HUMIRA [Suspect]
     Active Substance: ADALIMUMAB
     Indication: PSORIASIS
     Dosage: 1 X FREQUENCY TIME 14-12 DAYS
     Route: 058
     Dates: start: 2010

REACTIONS (5)
  - Diabetes mellitus [Not Recovered/Not Resolved]
  - Haematocrit increased [Unknown]
  - Monocyte count increased [Unknown]
  - Blood urea increased [Unknown]
  - Alanine aminotransferase increased [Unknown]

NARRATIVE: CASE EVENT DATE: 20141015
